FAERS Safety Report 14720117 (Version 1)
Quarter: 2018Q2

REPORT INFORMATION
  Report Type: Spontaneous
  Country: US (occurrence: US)
  Receive Date: 20180405
  Receipt Date: 20180405
  Transmission Date: 20180711
  Serious: Yes (Death)
  Sender: FDA-Public Use
  Company Number: PHEH2018US012960

PATIENT
  Age: 62 Year
  Sex: Female

DRUGS (1)
  1. TAFINLAR [Suspect]
     Active Substance: DABRAFENIB MESYLATE
     Indication: NEOPLASM MALIGNANT
     Dosage: 100 MG, BID
     Route: 048
     Dates: start: 20171016

REACTIONS (1)
  - Death [Fatal]

NARRATIVE: CASE EVENT DATE: 20180401
